FAERS Safety Report 10692433 (Version 1)
Quarter: 2015Q1

REPORT INFORMATION
  Report Type: Spontaneous
  Country: FR (occurrence: FR)
  Receive Date: 20150106
  Receipt Date: 20150106
  Transmission Date: 20150720
  Serious: Yes (Death, Hospitalization)
  Sender: FDA-Public Use
  Company Number: FR-BRISTOL-MYERS SQUIBB COMPANY-BMS-2014-004217

PATIENT
  Age: 72 Year
  Sex: Male

DRUGS (14)
  1. LOVENOX [Suspect]
     Active Substance: ENOXAPARIN SODIUM
     Indication: PRODUCT USED FOR UNKNOWN INDICATION
     Dosage: 400 IU, UNK
     Route: 058
     Dates: start: 20141016
  2. UROREC [Concomitant]
     Active Substance: SILODOSIN
  3. CORTANCYL [Concomitant]
     Active Substance: PREDNISONE
  4. ADENURIC [Concomitant]
     Active Substance: FEBUXOSTAT
  5. DIFFU K [Concomitant]
     Active Substance: POTASSIUM CHLORIDE
  6. CRESTOR [Concomitant]
     Active Substance: ROSUVASTATIN CALCIUM
  7. INIPOMP [Concomitant]
     Active Substance: PANTOPRAZOLE SODIUM
  8. COLCHIMAX                          /00728901/ [Concomitant]
     Active Substance: COLCHICINE\DICYCLOMINE HYDROCHLORIDE
  9. ELIQUIS [Suspect]
     Active Substance: APIXABAN
     Indication: PRODUCT USED FOR UNKNOWN INDICATION
     Dosage: 5 MG, UNK
     Route: 048
  10. KARDEGIC [Concomitant]
     Active Substance: ASPIRIN LYSINE
  11. ATACAND [Concomitant]
     Active Substance: CANDESARTAN CILEXETIL
  12. ACTONEL COMBI                      /02223601/ [Concomitant]
  13. CARDENSIEL [Concomitant]
     Active Substance: BISOPROLOL FUMARATE
  14. CORDARONE [Concomitant]
     Active Substance: AMIODARONE HYDROCHLORIDE

REACTIONS (4)
  - Rhinorrhoea [Unknown]
  - Pyrexia [Unknown]
  - Vomiting [Unknown]
  - Haemorrhage [Fatal]

NARRATIVE: CASE EVENT DATE: 20141016
